FAERS Safety Report 8599404-5 (Version None)
Quarter: 2012Q3

REPORT INFORMATION
  Report Type: 
  Country: None (occurrence: None)
  Receive Date: 20120808
  Receipt Date: 20120808
  Transmission Date: 20120928
  Serious: Yes (Hospitalization)
  Sender: FDA-Public Use
  Company Number: None

PATIENT
  Age: 44 Year
  Sex: Male
  Weight: 92 kg

DRUGS (7)
  1. IBUPROFEN [Concomitant]
  2. MOMETASONE FUROATE [Concomitant]
  3. LISINOPRIL [Concomitant]
  4. AMOXICILLIN/CLAVULANATE 875 MG [Suspect]
     Indication: OTITIS MEDIA
     Dosage: 875 MG BID PO
     Route: 048
  5. AMOXICILLIN/CLAVULANATE 875 MG [Suspect]
     Indication: UPPER RESPIRATORY TRACT INFECTION
     Dosage: 875 MG BID PO
     Route: 048
  6. ATORVASTATIN [Concomitant]
  7. ACETAMINOPHEN [Concomitant]

REACTIONS (2)
  - HEPATITIS ACUTE [None]
  - BILIARY COLIC [None]
